FAERS Safety Report 8007544-4 (Version None)
Quarter: 2011Q4

REPORT INFORMATION
  Report Type: 
  Country: None (occurrence: None)
  Receive Date: 20111227
  Receipt Date: 20111216
  Transmission Date: 20120403
  Serious: Yes (Other)
  Sender: FDA-Public Use
  Company Number: US-BAYER-2011-047530

PATIENT
  Age: 29 Year
  Sex: Female
  Weight: 99.773 kg

DRUGS (7)
  1. YAZ [Suspect]
     Indication: CONTRACEPTION
     Dosage: UNK
     Dates: start: 20080401, end: 20090801
  2. PENICILLIN [Concomitant]
  3. PHENTERMINE [Concomitant]
     Dosage: UNK
     Dates: start: 20090701
  4. CEPHALEXIN [Concomitant]
  5. METOPROLOL SUCCINATE [Concomitant]
     Indication: HYPERTENSION
     Dosage: UNK
     Dates: start: 20090101
  6. AZITHROMYCIN [Concomitant]
  7. PHENTERMINE [Concomitant]
     Indication: WEIGHT DECREASED
     Dosage: UNK
     Dates: start: 20050101, end: 20090401

REACTIONS (4)
  - CHOLECYSTITIS [None]
  - PAIN [None]
  - CHOLELITHIASIS [None]
  - INJURY [None]
